FAERS Safety Report 25115410 (Version 1)
Quarter: 2025Q1

REPORT INFORMATION
  Report Type: Spontaneous
  Country: US (occurrence: US)
  Receive Date: 20250324
  Receipt Date: 20250324
  Transmission Date: 20250409
  Serious: No
  Sender: BAYER HEALTHCARE LLC
  Company Number: US-BAYER-2025A038291

PATIENT

DRUGS (8)
  1. ALEVE [Suspect]
     Active Substance: NAPROXEN SODIUM
  2. NURTEC ODT [Suspect]
     Active Substance: RIMEGEPANT SULFATE
  3. AMITRIPTYLINE [Concomitant]
     Active Substance: AMITRIPTYLINE
  4. BOTOX [Concomitant]
     Active Substance: ONABOTULINUMTOXINA
  5. PROCHLORPERAZINE [Concomitant]
     Active Substance: PROCHLORPERAZINE
  6. RIZATRIPTAN [Concomitant]
     Active Substance: RIZATRIPTAN
  7. SUMATRIPTAN [Concomitant]
     Active Substance: SUMATRIPTAN
  8. UBRELVY [Concomitant]
     Active Substance: UBROGEPANT

REACTIONS (1)
  - Drug ineffective [None]

NARRATIVE: CASE EVENT DATE: 20250311
